FAERS Safety Report 13262528 (Version 6)
Quarter: 2017Q4

REPORT INFORMATION
  Report Type: Spontaneous
  Country: US (occurrence: US)
  Receive Date: 20170223
  Receipt Date: 20171013
  Transmission Date: 20180320
  Serious: Yes (Other)
  Sender: FDA-Public Use
  Company Number: PHEH2017US005501

PATIENT
  Age: 37 Year
  Sex: Female
  Weight: 63.49 kg

DRUGS (3)
  1. ZOFRAN [Suspect]
     Active Substance: ONDANSETRON HYDROCHLORIDE
     Indication: VOMITING IN PREGNANCY
     Dosage: 2 MG/ML, UNK
     Route: 042
     Dates: start: 20061219, end: 20070318
  2. ZOFRAN [Suspect]
     Active Substance: ONDANSETRON HYDROCHLORIDE
     Dosage: 8 MG, Q6H
     Route: 048
     Dates: start: 20061213, end: 20061218
  3. ZOFRAN [Suspect]
     Active Substance: ONDANSETRON HYDROCHLORIDE
     Indication: VOMITING IN PREGNANCY
     Dosage: 8 MG, Q6H
     Route: 048
     Dates: start: 20061129, end: 20061208

REACTIONS (41)
  - Spinal flattening [Unknown]
  - Muscle strain [Unknown]
  - Pyrexia [Unknown]
  - Thoracic vertebral fracture [Unknown]
  - Decreased appetite [Unknown]
  - Intervertebral disc degeneration [Unknown]
  - Hyperhidrosis [Unknown]
  - Mood swings [Unknown]
  - Mobility decreased [Unknown]
  - Stillbirth [Unknown]
  - Lumbar vertebral fracture [Unknown]
  - Road traffic accident [Unknown]
  - Chest discomfort [Unknown]
  - Myalgia [Unknown]
  - Haemangioma [Unknown]
  - Gastric ulcer [Unknown]
  - Injury [Unknown]
  - Disturbance in attention [Unknown]
  - Anxiety [Unknown]
  - Product use in unapproved indication [Unknown]
  - Haematochezia [Unknown]
  - Depression [Unknown]
  - Back pain [Unknown]
  - Premature delivery [Unknown]
  - Fractured coccyx [Unknown]
  - Insomnia [Unknown]
  - Musculoskeletal stiffness [Unknown]
  - Gastric dilatation [Unknown]
  - Renal cyst [Unknown]
  - Dyspnoea [Unknown]
  - Constipation [Unknown]
  - Fractured sacrum [Unknown]
  - Maternal exposure during pregnancy [Unknown]
  - Coagulopathy [Unknown]
  - Pulmonary embolism [Unknown]
  - Premature separation of placenta [Unknown]
  - Ovarian cyst [Unknown]
  - Hypoaesthesia [Unknown]
  - Musculoskeletal pain [Unknown]
  - Arthralgia [Unknown]
  - Chest pain [Unknown]

NARRATIVE: CASE EVENT DATE: 20070702
